FAERS Safety Report 11060016 (Version 1)
Quarter: 2015Q2

REPORT INFORMATION
  Report Type: Spontaneous
  Country: US (occurrence: US)
  Receive Date: 20150423
  Receipt Date: 20150423
  Transmission Date: 20150821
  Serious: Yes (Other)
  Sender: FDA-Public Use
  Company Number: US-ROXANE LABORATORIES, INC.-2015-RO-00706RO

PATIENT
  Age: 80 Year
  Sex: Male

DRUGS (1)
  1. IPRATROPIUM BROMIDE NASAL SOLUTION, 0.06% [Suspect]
     Active Substance: IPRATROPIUM BROMIDE
     Indication: RHINORRHOEA
     Route: 045

REACTIONS (1)
  - Seizure [Recovered/Resolved]
